FAERS Safety Report 7637546-9 (Version None)
Quarter: 2011Q3

REPORT INFORMATION
  Report Type: 
  Country: None (occurrence: None)
  Receive Date: 20110726
  Receipt Date: 20110720
  Transmission Date: 20111222
  Serious: No
  Sender: FDA-Public Use
  Company Number: US-PFIZER INC-2011165130

PATIENT
  Sex: Female
  Weight: 81.633 kg

DRUGS (3)
  1. PANTOPRAZOLE [Suspect]
     Dosage: UNK
     Route: 042
     Dates: start: 20110501, end: 20110501
  2. PANTOPRAZOLE [Suspect]
     Indication: DYSPEPSIA
  3. PANTOPRAZOLE [Suspect]
     Indication: GASTROOESOPHAGEAL REFLUX DISEASE
     Dosage: 40 MG, 1X/DAY
     Route: 048
     Dates: start: 20100101, end: 20110710

REACTIONS (14)
  - URTICARIA [None]
  - CHEST DISCOMFORT [None]
  - RASH [None]
  - CHILLS [None]
  - BURNING SENSATION [None]
  - HEADACHE [None]
  - EYE IRRITATION [None]
  - OROPHARYNGEAL PAIN [None]
  - SKIN BURNING SENSATION [None]
  - FATIGUE [None]
  - GASTRIC DISORDER [None]
  - PHOTOSENSITIVITY REACTION [None]
  - BLISTER [None]
  - MUSCLE SPASMS [None]
